FAERS Safety Report 5662126-4 (Version None)
Quarter: 2008Q1

REPORT INFORMATION
  Report Type: 
  Country: None (occurrence: None)
  Receive Date: 20080312
  Receipt Date: 20080225
  Transmission Date: 20080703
  Serious: No
  Sender: FDA-Public Use
  Company Number: US-BOEHRINGER INGELHEIM GMBH, GERMANY-2008-BP-02764BP

PATIENT
  Age: 82 Year
  Sex: Male

DRUGS (3)
  1. ZANTAC 150 [Suspect]
     Indication: DYSPEPSIA
     Route: 048
     Dates: start: 20080205
  2. ZANTAC 150 [Suspect]
  3. TERAZOSIN HYDROCHLORIDE [Concomitant]

REACTIONS (1)
  - DIARRHOEA [None]
